FAERS Safety Report 6026777-X (Version None)
Quarter: 2009Q1

REPORT INFORMATION
  Report Type: 
  Country: None (occurrence: None)
  Receive Date: 20090105
  Receipt Date: 20081229
  Transmission Date: 20090719
  Serious: Yes (Hospitalization)
  Sender: FDA-Public Use
  Company Number: DE-JNJFOC-20081101134

PATIENT
  Age: 37 Year
  Sex: Male

DRUGS (16)
  1. HALDOL [Suspect]
     Route: 048
  2. HALDOL [Suspect]
     Route: 048
  3. HALDOL [Suspect]
     Route: 048
  4. HALDOL [Suspect]
     Indication: DRUG USE FOR UNKNOWN INDICATION
     Route: 048
  5. SOLIAN [Suspect]
     Route: 048
  6. SOLIAN [Suspect]
     Route: 048
  7. SOLIAN [Suspect]
     Route: 048
  8. SOLIAN [Suspect]
     Route: 048
  9. SOLIAN [Suspect]
     Route: 048
  10. SOLIAN [Suspect]
     Route: 048
  11. SOLIAN [Suspect]
     Route: 048
  12. SOLIAN [Suspect]
     Route: 048
  13. SOLIAN [Suspect]
     Indication: DRUG USE FOR UNKNOWN INDICATION
     Route: 048
  14. TAVOR [Concomitant]
     Route: 048
  15. TAVOR [Concomitant]
     Route: 048
  16. TAVOR [Concomitant]
     Route: 048

REACTIONS (1)
  - PERICARDITIS [None]
